FAERS Safety Report 22360947 (Version 2)
Quarter: 2023Q2

REPORT INFORMATION
  Report Type: Spontaneous
  Country: US (occurrence: US)
  Receive Date: 20230524
  Receipt Date: 20230606
  Transmission Date: 20230722
  Serious: Yes (Other)
  Sender: FDA-Public Use
  Company Number: US-PFIZER INC-PV202300088749

PATIENT
  Age: 64 Year
  Sex: Female

DRUGS (2)
  1. IBRANCE [Suspect]
     Active Substance: PALBOCICLIB
     Dosage: UNK
  2. FASLODEX [Concomitant]
     Active Substance: FULVESTRANT

REACTIONS (9)
  - Knee arthroplasty [Unknown]
  - Atrial fibrillation [Unknown]
  - Arthralgia [Unknown]
  - Headache [Unknown]
  - Arthropathy [Unknown]
  - Speech disorder [Unknown]
  - Fatigue [Unknown]
  - Thinking abnormal [Unknown]
  - Blood oestrogen increased [Unknown]
